FAERS Safety Report 16711351 (Version 2)
Quarter: 2019Q3

REPORT INFORMATION
  Report Type: Spontaneous
  Country: US (occurrence: US)
  Receive Date: 20190816
  Receipt Date: 20190822
  Transmission Date: 20191004
  Serious: Yes (Other)
  Sender: FDA-Public Use
  Company Number: US-SA-2019SA215711

PATIENT
  Sex: Male

DRUGS (2)
  1. LANTUS SOLOSTAR [Suspect]
     Active Substance: INSULIN GLARGINE
     Dosage: 12 U, EVERY MORNING
     Route: 065
  2. NOVOLOG [Concomitant]
     Active Substance: INSULIN ASPART
     Route: 065

REACTIONS (6)
  - Blood glucose increased [Unknown]
  - Product storage error [Unknown]
  - Spinal operation [Unknown]
  - Aphasia [Unknown]
  - Cerebrovascular accident [Unknown]
  - Gait inability [Unknown]
